FAERS Safety Report 7232824-X (Version None)
Quarter: 2011Q1

REPORT INFORMATION
  Report Type: 
  Country: None (occurrence: None)
  Receive Date: 20110106
  Receipt Date: 20101227
  Transmission Date: 20110831
  Serious: Yes (Death)
  Sender: FDA-Public Use
  Company Number: 024669

PATIENT
  Sex: Male

DRUGS (8)
  1. SELEGILINE HYDROCHLORIDE [Concomitant]
  2. MAGNESIUM OXIDE [Concomitant]
  3. BENSERAZIDE HYDROCHLORIDE [Concomitant]
  4. ROTIGOTINE (ROTIGOTINE) [Suspect]
     Indication: PARKINSON'S DISEASE
     Dosage: 2 MG-16 MG TRANDERMAL, TITRATED UP TO 16 MG/24 HOUR TRANSDERMAL
     Route: 062
     Dates: start: 20100701, end: 20101226
  5. ROTIGOTINE (ROTIGOTINE) [Suspect]
     Indication: PARKINSON'S DISEASE
     Dosage: 2 MG-16 MG TRANDERMAL, TITRATED UP TO 16 MG/24 HOUR TRANSDERMAL
     Route: 062
     Dates: start: 20100519, end: 20100701
  6. IMIDAPRIL HYDROCHLORIDE [Concomitant]
  7. ASPIRIN [Concomitant]
  8. AMANTADINE HCL [Concomitant]

REACTIONS (4)
  - SUDDEN DEATH [None]
  - FALL [None]
  - RESUSCITATION [None]
  - UNRESPONSIVE TO STIMULI [None]
